FAERS Safety Report 9501724 (Version 1)
Quarter: 2013Q3

REPORT INFORMATION
  Report Type: Spontaneous
  Country: GB (occurrence: GB)
  Receive Date: 20130905
  Receipt Date: 20130905
  Transmission Date: 20140515
  Serious: Yes (Other)
  Sender: FDA-Public Use
  Company Number: GB-TEVA-429694ISR

PATIENT
  Sex: Female

DRUGS (4)
  1. SIMVASTATIN [Suspect]
  2. LIPITOR [Suspect]
  3. RAMIPRIL [Concomitant]
  4. BENDROFLUMETHIAZIDE [Concomitant]

REACTIONS (2)
  - Myalgia [Not Recovered/Not Resolved]
  - Blood creatine phosphokinase increased [Unknown]
